FAERS Safety Report 10474173 (Version 1)
Quarter: 2014Q3

REPORT INFORMATION
  Report Type: Spontaneous
  Country: JP (occurrence: JP)
  Receive Date: 20140924
  Receipt Date: 20140924
  Transmission Date: 20150326
  Serious: Yes (Other)
  Sender: FDA-Public Use
  Company Number: JP-PFIZER INC-2014261481

PATIENT
  Age: 3 Year
  Sex: Male

DRUGS (1)
  1. GENOTROPIN TC [Suspect]
     Active Substance: SOMATROPIN
     Dosage: 0.4 MG, UNK
     Route: 058

REACTIONS (2)
  - Nausea [Unknown]
  - Hypothermia [Unknown]

NARRATIVE: CASE EVENT DATE: 20140919
